FAERS Safety Report 6138803-8 (Version None)
Quarter: 2009Q1

REPORT INFORMATION
  Report Type: 
  Country: None (occurrence: None)
  Receive Date: 20090331
  Receipt Date: 20090324
  Transmission Date: 20090719
  Serious: Yes (Death)
  Sender: FDA-Public Use
  Company Number: GB-ABBOTT-09P-167-0565429-00

PATIENT
  Age: 1 Month
  Sex: Male

DRUGS (1)
  1. ERYTHROMYCIN [Suspect]
     Indication: PERTUSSIS
     Dosage: UNKNOWN

REACTIONS (1)
  - DRUG INEFFECTIVE [None]
